FAERS Safety Report 8046216-7 (Version None)
Quarter: 2012Q1

REPORT INFORMATION
  Report Type: 
  Country: None (occurrence: None)
  Receive Date: 20120113
  Receipt Date: 20120104
  Transmission Date: 20120608
  Serious: Yes (Hospitalization)
  Sender: FDA-Public Use
  Company Number: AT-SANOFI-AVENTIS-200911622GDDC

PATIENT
  Age: 67 Year
  Sex: Male
  Weight: 90 kg

DRUGS (11)
  1. DIBONDRIN [Concomitant]
  2. CETUXIMAB [Concomitant]
     Route: 042
     Dates: start: 20090123, end: 20090123
  3. CILAZAPRIL [Concomitant]
     Route: 048
  4. NAVOBAN [Concomitant]
  5. DOCETAXEL [Suspect]
     Route: 042
     Dates: start: 20090123, end: 20090213
  6. CETUXIMAB [Concomitant]
     Route: 042
     Dates: start: 20090130, end: 20090223
  7. CISPLATIN [Suspect]
     Route: 042
     Dates: start: 20090123, end: 20090214
  8. CARVEDILOL [Concomitant]
     Route: 048
  9. PANTOPRAZOLE [Concomitant]
     Route: 048
  10. GLUCOPHAGE [Concomitant]
     Route: 048
  11. DEXABENE [Concomitant]

REACTIONS (1)
  - GOUTY ARTHRITIS [None]
